FAERS Safety Report 18602466 (Version 2)
Quarter: 2021Q1

REPORT INFORMATION
  Report Type: Spontaneous
  Country: PL (occurrence: PL)
  Receive Date: 20201211
  Receipt Date: 20210118
  Transmission Date: 20210419
  Serious: Yes (Other)
  Sender: FDA-Public Use
  Company Number: PL-AUROBINDO-AUR-APL-2020-060016

PATIENT
  Age: 56 Year
  Sex: Female

DRUGS (6)
  1. LAMOTRIGINE. [Suspect]
     Active Substance: LAMOTRIGINE
     Indication: BIPOLAR II DISORDER
     Dosage: UNK
     Route: 065
     Dates: start: 2010
  2. LAMOTRIGINE. [Suspect]
     Active Substance: LAMOTRIGINE
     Indication: BIPOLAR DISORDER
     Dosage: UNK
     Route: 065
     Dates: start: 2008
  3. LITHIUM CARBONATE. [Suspect]
     Active Substance: LITHIUM CARBONATE
     Indication: DEPRESSED MOOD
     Dosage: 150 MILLIGRAM, ONCE A DAY
     Route: 065
     Dates: start: 2007
  4. VENLAFAXINE [Suspect]
     Active Substance: VENLAFAXINE HYDROCHLORIDE
     Indication: DEPRESSED MOOD
     Dosage: 150 MILLIGRAM, ONCE A DAY
     Route: 065
  5. LITHIUM CARBONATE. [Suspect]
     Active Substance: LITHIUM CARBONATE
     Indication: BIPOLAR II DISORDER
  6. VENLAFAXINE [Suspect]
     Active Substance: VENLAFAXINE HYDROCHLORIDE
     Indication: BIPOLAR II DISORDER
     Dosage: 225 MILLIGRAM, ONCE A DAY
     Route: 065

REACTIONS (7)
  - Affective disorder [Recovered/Resolved]
  - White blood cell count decreased [Recovered/Resolved]
  - Leukopenia [Recovered/Resolved]
  - Granulocyte count decreased [Recovered/Resolved]
  - Neutropenia [Recovered/Resolved]
  - Drug ineffective [Recovered/Resolved]
  - Treatment noncompliance [Unknown]

NARRATIVE: CASE EVENT DATE: 2015
